FAERS Safety Report 5311695-2 (Version None)
Quarter: 2007Q2

REPORT INFORMATION
  Report Type: 
  Country: None (occurrence: None)
  Receive Date: 20070426
  Receipt Date: 20070426
  Transmission Date: 20071010
  Serious: No
  Sender: FDA-Public Use
  Company Number: None

PATIENT
  Age: 46 Year
  Sex: Female
  Weight: 63.5036 kg

DRUGS (1)
  1. PANITUMUMAB 400MG/2ML VIAL AMGEN [Suspect]
     Indication: COLON CANCER STAGE IV
     Dosage: 400 MG EVERY TWO WEEKS IV DRIP
     Route: 041
     Dates: start: 20070201, end: 20070425

REACTIONS (3)
  - CHILLS [None]
  - DISEASE PROGRESSION [None]
  - RASH [None]
